FAERS Safety Report 8064328-9 (Version None)
Quarter: 2012Q1

REPORT INFORMATION
  Report Type: 
  Country: None (occurrence: None)
  Receive Date: 20120123
  Receipt Date: 20120117
  Transmission Date: 20120608
  Serious: Yes (Hospitalization)
  Sender: FDA-Public Use
  Company Number: RU-AMGEN-RUSOT2012003404

PATIENT
  Age: 80 Year
  Sex: Female

DRUGS (4)
  1. PREDNISOLONE [Concomitant]
     Indication: MULTIPLE MYELOMA
     Dosage: 30 MG, QD
  2. CYCLOPHOSPHAN [Concomitant]
     Indication: MULTIPLE MYELOMA
     Dosage: 800 MG, UNK
  3. DARBEPOETIN ALFA [Suspect]
     Indication: ANAEMIA
     Dosage: 500 MG, UNK
  4. VINCRISTINE [Concomitant]
     Indication: MULTIPLE MYELOMA
     Dosage: 1.5 MG, UNK

REACTIONS (2)
  - PAIN IN EXTREMITY [None]
  - BACK PAIN [None]
